FAERS Safety Report 8668019 (Version 5)
Quarter: 2014Q2

REPORT INFORMATION
  Report Type: Report from Study
  Country: JP (occurrence: JP)
  Receive Date: 20120717
  Receipt Date: 20140424
  Transmission Date: 20141212
  Serious: Yes (Hospitalization)
  Sender: FDA-Public Use
  Company Number: JP-UCBSA-061414

PATIENT
  Age: 61 Year
  Sex: Female

DRUGS (12)
  1. CERTOLIZUMAB PEGOL [Suspect]
     Indication: RHEUMATOID ARTHRITIS
     Route: 058
     Dates: end: 20120612
  2. CERTOLIZUMAB PEGOL [Suspect]
     Indication: RHEUMATOID ARTHRITIS
     Dosage: (400 MG: LOADING DOSE) W0, W2, W4
     Route: 058
     Dates: start: 20111227
  3. METHOTREXATE [Suspect]
     Indication: RHEUMATOID ARTHRITIS
     Route: 048
     Dates: end: 20120620
  4. METHOTREXATE [Suspect]
     Indication: RHEUMATOID ARTHRITIS
     Route: 048
     Dates: start: 20120515
  5. METHOTREXATE [Suspect]
     Indication: RHEUMATOID ARTHRITIS
     Route: 048
     Dates: start: 2012, end: 20120515
  6. METHOTREXATE [Suspect]
     Indication: RHEUMATOID ARTHRITIS
     Route: 048
     Dates: start: 20111228, end: 2012
  7. REBAMIPIDE [Concomitant]
  8. MISOPROSTOL [Concomitant]
     Dates: start: 201110
  9. FOLIC ACID [Concomitant]
     Dates: start: 20111230, end: 20120622
  10. CELECOXIB [Concomitant]
  11. LOXOPROFEN [Concomitant]
     Dosage: DAILY DOSE: QS PRN
     Dates: start: 20120316
  12. ATORVASTATIN CALCIUM HYDRATE [Concomitant]
     Dates: start: 20120316

REACTIONS (1)
  - Interstitial lung disease [Recovering/Resolving]
